FAERS Safety Report 4712950-7 (Version None)
Quarter: 2005Q3

REPORT INFORMATION
  Report Type: 
  Country: None (occurrence: None)
  Receive Date: 20050712
  Receipt Date: 20050712
  Transmission Date: 20060218
  Serious: Yes (Other)
  Sender: FDA-Public Use
  Company Number: None

PATIENT
  Sex: Female
  Weight: 60 kg

DRUGS (2)
  1. PHENTERMINE HCL [Suspect]
     Indication: WEIGHT CONTROL
     Dosage: 18.75 MC  BID   ORAL
     Route: 048
     Dates: start: 20050708, end: 20050710
  2. PHENTERMINE -AMIDE-. [Concomitant]

REACTIONS (2)
  - DRUG INEFFECTIVE [None]
  - PHARMACEUTICAL PRODUCT COMPLAINT [None]
